FAERS Safety Report 7985341-3 (Version None)
Quarter: 2011Q4

REPORT INFORMATION
  Report Type: 
  Country: None (occurrence: None)
  Receive Date: 20111216
  Receipt Date: 20111024
  Transmission Date: 20120403
  Serious: No
  Sender: FDA-Public Use
  Company Number: US-ABBOTT-11P-163-0867647-00

PATIENT
  Sex: Female

DRUGS (13)
  1. VENTOLIN [Concomitant]
     Indication: WHEEZING
     Dosage: EVERY 4-6 HOURS AS NEEDED
     Route: 055
     Dates: start: 20110523
  2. LOVAZA [Concomitant]
     Indication: BLOOD TRIGLYCERIDES
     Route: 048
     Dates: start: 20110808
  3. METFORMIN HCL [Concomitant]
     Indication: BLOOD PRESSURE
     Route: 048
     Dates: start: 20110808
  4. FENOFIBRATE [Concomitant]
     Indication: BLOOD TRIGLYCERIDES
     Route: 048
     Dates: start: 20110808
  5. KLONOPIN [Concomitant]
     Indication: ANXIETY
     Dosage: ONE DAILY AS NEEDED
     Route: 048
     Dates: start: 20111011
  6. LISINOPRIL [Concomitant]
     Indication: BLOOD PRESSURE
     Route: 048
     Dates: start: 20110808
  7. ASPIRIN [Concomitant]
     Indication: PRODUCT USED FOR UNKNOWN INDICATION
     Route: 048
     Dates: start: 20080915
  8. FLUTICASONE PROPIONATE [Concomitant]
     Indication: HYPERSENSITIVITY
     Route: 045
     Dates: start: 20110808
  9. METOPROLOL TARTRATE [Concomitant]
     Indication: BLOOD PRESSURE
     Route: 048
     Dates: start: 20110808
  10. GLIMEPIRIDE [Concomitant]
     Indication: DIABETES MELLITUS
     Route: 048
     Dates: start: 20110808
  11. TRILIPIX [Suspect]
     Indication: BLOOD TRIGLYCERIDES
     Route: 048
     Dates: start: 20110808
  12. CRESTOR [Concomitant]
     Indication: BLOOD CHOLESTEROL
     Dosage: AT BEDTIME
     Route: 048
     Dates: start: 20110808
  13. LORATADINE [Concomitant]
     Indication: HYPERSENSITIVITY
     Route: 048
     Dates: start: 20110808

REACTIONS (1)
  - ANXIETY [None]
